FAERS Safety Report 9669895 (Version 1)
Quarter: 2013Q4

REPORT INFORMATION
  Report Type: Spontaneous
  Country: US (occurrence: US)
  Receive Date: 20131105
  Receipt Date: 20131105
  Transmission Date: 20140711
  Serious: Yes (Hospitalization)
  Sender: FDA-Public Use
  Company Number: PHHY2013US120912

PATIENT
  Age: 13 Year
  Sex: Female

DRUGS (14)
  1. VALPROIC ACID [Suspect]
     Indication: PSYCHOTIC DISORDER
     Dosage: 1000 MG, (250 MG IN MORNING AND AFTERNOON AND 500MG AT BEDTIME)
  2. BENZTROPINE [Suspect]
     Indication: PSYCHOTIC DISORDER
     Dosage: 0.25 MG, BID
  3. METHYLPHENIDATE [Suspect]
  4. DEXTROAMPHETAMINE [Suspect]
  5. OXCARBAZEPINE [Suspect]
  6. HALOPERIDOL [Suspect]
     Indication: PSYCHOTIC DISORDER
     Dosage: 1 MG, TID
  7. CLONIDINE [Suspect]
     Indication: PSYCHOTIC DISORDER
     Dosage: 0.1 MG, QHS
  8. ATOMOXETINE [Suspect]
  9. BUSPIRONE [Suspect]
  10. NALTREXONE [Suspect]
  11. QUETIAPINE [Suspect]
  12. RISPERIDONE [Suspect]
  13. ARIPIPRAZOLE [Suspect]
  14. OLANZAPINE [Suspect]

REACTIONS (22)
  - Self injurious behaviour [Recovering/Resolving]
  - Psychomotor hyperactivity [Recovering/Resolving]
  - Irritability [Recovering/Resolving]
  - Screaming [Recovering/Resolving]
  - Head banging [Recovering/Resolving]
  - Stupor [Recovering/Resolving]
  - Unresponsive to stimuli [Recovering/Resolving]
  - Staring [Recovering/Resolving]
  - Muscle rigidity [Recovering/Resolving]
  - Echopraxia [Recovering/Resolving]
  - Diet refusal [Recovering/Resolving]
  - Mutism [Recovering/Resolving]
  - Echolalia [Recovering/Resolving]
  - Catatonia [Recovering/Resolving]
  - Posturing [Recovering/Resolving]
  - Negativism [Recovering/Resolving]
  - Agitation [Recovering/Resolving]
  - Laceration [Unknown]
  - Aggression [Recovering/Resolving]
  - Retinal tear [Unknown]
  - Dystonia [Unknown]
  - Drug ineffective [Unknown]
